FAERS Safety Report 7568751-8 (Version None)
Quarter: 2011Q2

REPORT INFORMATION
  Report Type: 
  Country: None (occurrence: None)
  Receive Date: 20110623
  Receipt Date: 20110621
  Transmission Date: 20111010
  Serious: Yes (Death, Hospitalization)
  Sender: FDA-Public Use
  Company Number: US-B.I. PHARMACEUTICALS,INC./RIDGEFIELD-2011-BP-06132BP

PATIENT
  Age: 89 Year
  Sex: Female
  Weight: 66.68 kg

DRUGS (7)
  1. COZAAR [Concomitant]
     Dosage: 50 MG
  2. ESTRACE [Concomitant]
  3. LEVOTHYROXINE SODIUM [Concomitant]
  4. PRADAXA [Suspect]
     Indication: ATRIAL FIBRILLATION
     Dosage: 300 MG
     Route: 048
     Dates: start: 20101230
  5. PLAVIX [Concomitant]
  6. ISOSORBIDE [Concomitant]
     Dosage: 10 MG
  7. METOPROLOL TARTRATE [Concomitant]
     Dosage: 50 MG

REACTIONS (2)
  - DEATH [None]
  - HAEMATOMA [None]
